FAERS Safety Report 8050590-5 (Version None)
Quarter: 2012Q1

REPORT INFORMATION
  Report Type: 
  Country: None (occurrence: None)
  Receive Date: 20120117
  Receipt Date: 20120104
  Transmission Date: 20120608
  Serious: Yes (Other)
  Sender: FDA-Public Use
  Company Number: US-PFIZER INC-2012002663

PATIENT
  Sex: Female
  Weight: 99.77 kg

DRUGS (7)
  1. LYRICA [Suspect]
     Dosage: 75 MG, 2X/DAY
     Route: 048
  2. LYRICA [Suspect]
     Dosage: 75 MG, 1X/DAY
     Route: 048
     Dates: end: 20111231
  3. MICARDIS [Concomitant]
     Dosage: 40 MG
  4. METFORMIN [Concomitant]
     Dosage: 500 MG
  5. SIMVASTATIN [Concomitant]
     Dosage: 10 MG
  6. LYRICA [Suspect]
     Indication: FIBROMYALGIA
     Dosage: 50 MG, 1X/DAY
     Route: 048
     Dates: start: 20100101
  7. COREG [Concomitant]
     Indication: CARDIOMYOPATHY
     Dosage: 10 MG

REACTIONS (3)
  - CARDIOMYOPATHY [None]
  - PAIN [None]
  - SOMNOLENCE [None]
